FAERS Safety Report 23342358 (Version 6)
Quarter: 2025Q3

REPORT INFORMATION
  Report Type: Spontaneous
  Country: EU (occurrence: EU)
  Receive Date: 20231227
  Receipt Date: 20250919
  Transmission Date: 20251020
  Serious: Yes (Other)
  Sender: MYLAN
  Company Number: EU-ELI_LILLY_AND_COMPANY-IE202309005685

PATIENT
  Age: 39 Year
  Sex: Male
  Weight: 100 kg

DRUGS (7)
  1. SERTRALINE [Suspect]
     Active Substance: SERTRALINE HYDROCHLORIDE
     Indication: Depression
  2. ZYPREXA [Suspect]
     Active Substance: OLANZAPINE
     Indication: Dissociation
  3. ZYPREXA [Suspect]
     Active Substance: OLANZAPINE
     Indication: Depression
  4. ZYPREXA [Suspect]
     Active Substance: OLANZAPINE
     Indication: Anxiety
  5. ZYPREXA [Suspect]
     Active Substance: OLANZAPINE
     Indication: Affective disorder
  6. MIRTAZAPINE [Concomitant]
     Active Substance: MIRTAZAPINE
     Indication: Depression
  7. ARIPIPRAZOLE [Concomitant]
     Active Substance: ARIPIPRAZOLE
     Indication: Product used for unknown indication

REACTIONS (35)
  - Abdominal distension [Unknown]
  - Gastrooesophageal reflux disease [Not Recovered/Not Resolved]
  - Hepatic steatosis [Unknown]
  - Sleep apnoea syndrome [Not Recovered/Not Resolved]
  - Dyspepsia [Unknown]
  - Drug withdrawal syndrome [Unknown]
  - Retching [Unknown]
  - Libido disorder [Unknown]
  - Blood cholesterol increased [Unknown]
  - Dysphagia [Not Recovered/Not Resolved]
  - Choking [Unknown]
  - Hypercholesterolaemia [Not Recovered/Not Resolved]
  - Swelling face [Unknown]
  - Dissociative disorder [Not Recovered/Not Resolved]
  - Depression [Recovered/Resolved]
  - Abdominal pain upper [Unknown]
  - Anxiety [Not Recovered/Not Resolved]
  - Hepatic pain [Unknown]
  - Alcohol intolerance [Unknown]
  - Abnormal behaviour [Unknown]
  - Dyspnoea [Unknown]
  - Hepatobiliary disease [Unknown]
  - Neurotoxicity [Unknown]
  - Weight increased [Recovering/Resolving]
  - Suicidal ideation [Recovered/Resolved]
  - Libido decreased [Unknown]
  - Metabolic disorder [Unknown]
  - Injury [Unknown]
  - Anhedonia [Unknown]
  - Duodenogastric reflux [Unknown]
  - Nervous system disorder [Recovered/Resolved]
  - General physical health deterioration [Unknown]
  - Vomiting [Unknown]
  - Product prescribing issue [Unknown]
  - Off label use [Unknown]

NARRATIVE: CASE EVENT DATE: 20220101
